FAERS Safety Report 14412555 (Version 4)
Quarter: 2018Q1

REPORT INFORMATION
  Report Type: Spontaneous
  Country: FR (occurrence: FR)
  Receive Date: 20180119
  Receipt Date: 20180227
  Transmission Date: 20180509
  Serious: Yes (Other)
  Sender: FDA-Public Use
  Company Number: FR-ALLERGAN-1802767US

PATIENT
  Age: 33 Year
  Sex: Female
  Weight: 53 kg

DRUGS (4)
  1. CITALOPRAM HYDROBROMIDE - BP [Suspect]
     Active Substance: CITALOPRAM HYDROBROMIDE
     Indication: DEPRESSION
     Dosage: 10 MG, QD
     Route: 048
     Dates: start: 20110601
  2. VOLTARENE (DICLOFENAC SODIUM) [Suspect]
     Active Substance: DICLOFENAC SODIUM
     Indication: ANKYLOSING SPONDYLITIS
     Dosage: 150 MG, QD
     Route: 048
  3. SALAZOPYRINE [Suspect]
     Active Substance: SULFASALAZINE
     Indication: ANKYLOSING SPONDYLITIS
     Dosage: 2000 MG, QD
     Route: 048
     Dates: start: 2003
  4. REMICADE [Suspect]
     Active Substance: INFLIXIMAB
     Indication: ANKYLOSING SPONDYLITIS
     Dosage: 4 MG/KG/CURE; IN TOTAL
     Route: 042
     Dates: start: 20101201, end: 20110707

REACTIONS (2)
  - Pregnancy [Unknown]
  - Abortion spontaneous [Recovered/Resolved with Sequelae]

NARRATIVE: CASE EVENT DATE: 20110713
